FAERS Safety Report 9435207 (Version 1)
Quarter: 2013Q3

REPORT INFORMATION
  Report Type: Spontaneous
  Country: FR (occurrence: FR)
  Receive Date: 20130801
  Receipt Date: 20130801
  Transmission Date: 20140515
  Serious: Yes (Hospitalization)
  Sender: FDA-Public Use
  Company Number: FR-PFIZER INC-2013222616

PATIENT
  Age: 84 Year
  Sex: Male

DRUGS (6)
  1. INIPOMP [Suspect]
     Dosage: UNK
     Route: 048
     Dates: start: 20130214, end: 20130217
  2. KARDEGIC [Suspect]
     Dosage: UNK
     Route: 048
     Dates: end: 20130217
  3. KARDEGIC [Suspect]
     Dosage: UNK
  4. SINTROM [Suspect]
     Dosage: UNK
     Route: 048
     Dates: end: 20130217
  5. JOSACINE [Suspect]
     Dosage: UNK
     Route: 048
     Dates: start: 20130214, end: 20130217
  6. SOLUPRED [Suspect]
     Dosage: UNK
     Dates: start: 20130214, end: 20130217

REACTIONS (2)
  - Haematoma [Recovered/Resolved]
  - International normalised ratio increased [Recovered/Resolved]
